FAERS Safety Report 7429991-1 (Version None)
Quarter: 2011Q2

REPORT INFORMATION
  Report Type: 
  Country: None (occurrence: None)
  Receive Date: 20110421
  Receipt Date: 20110412
  Transmission Date: 20111010
  Serious: Yes (Death, Other)
  Sender: FDA-Public Use
  Company Number: JP-GENZYME-CERZ-1001751

PATIENT

DRUGS (10)
  1. AMBROXOL HYDROCHLORIDE [Concomitant]
     Indication: PRODUCT USED FOR UNKNOWN INDICATION
     Dosage: 0.2 G, TID
     Dates: start: 20080301
  2. PHENYTOIN [Concomitant]
     Indication: PREMEDICATION
     Dosage: 70 MG, BID
  3. FERRIC PYROPHOSPHATE [Concomitant]
     Indication: PRODUCT USED FOR UNKNOWN INDICATION
     Dosage: 2.5 ML, UNK
  4. SULFAMETHOXYPYRIDAZINE [Concomitant]
     Indication: PRODUCT USED FOR UNKNOWN INDICATION
     Dosage: 0.2 G, QD
     Dates: start: 20100601
  5. CEREZYME [Suspect]
     Dosage: 1000 U, Q2W
     Route: 042
     Dates: start: 20080228, end: 20101215
  6. ERYTHROMYCIN ETHYLSUCCINATE [Concomitant]
     Indication: PREMEDICATION
     Dosage: 70 MG, 2X/Q24HR
     Dates: start: 20080301
  7. PHENOBARBITAL SRT [Concomitant]
     Indication: PREMEDICATION
     Dosage: 73 MG, TID
  8. CARBOCISTEINE [Concomitant]
     Indication: PRODUCT USED FOR UNKNOWN INDICATION
     Dosage: 0.2 G, TID
     Dates: start: 20080301
  9. CEREZYME [Suspect]
     Indication: GAUCHER'S DISEASE
     Dosage: 600 U, Q2W
     Route: 042
     Dates: start: 20080228, end: 20101215
  10. ZONISAMIDE [Concomitant]
     Indication: PREMEDICATION
     Dosage: 30 MG, TID

REACTIONS (4)
  - VENTRICULAR TACHYCARDIA [None]
  - URINE OUTPUT DECREASED [None]
  - VENTRICULAR FIBRILLATION [None]
  - HYPERKALAEMIA [None]
